FAERS Safety Report 18546962 (Version 2)
Quarter: 2022Q1

REPORT INFORMATION
  Report Type: Spontaneous
  Country: FR (occurrence: None)
  Receive Date: 20201125
  Receipt Date: 20220114
  Transmission Date: 20220423
  Serious: Yes (Other)
  Sender: FDA-Public Use
  Company Number: None

PATIENT
  Age: 75 Year
  Sex: Male
  Weight: 70 kg

DRUGS (4)
  1. PACLITAXEL [Suspect]
     Active Substance: PACLITAXEL
     Indication: Lung neoplasm malignant
     Route: 042
     Dates: start: 20200806, end: 20210108
  2. CIMETIDINE [Suspect]
     Active Substance: CIMETIDINE
     Indication: Premedication
     Route: 048
     Dates: start: 20200806, end: 20201204
  3. AMOXICILLIN\CLAVULANATE POTASSIUM [Suspect]
     Active Substance: AMOXICILLIN\CLAVULANATE POTASSIUM
     Indication: Infection
     Route: 048
     Dates: start: 20200828, end: 20200909
  4. AMOXICILLIN\CLAVULANATE POTASSIUM [Concomitant]
     Active Substance: AMOXICILLIN\CLAVULANATE POTASSIUM
     Indication: Infection
     Route: 048
     Dates: start: 20200828, end: 20200909

REACTIONS (1)
  - Hepatitis cholestatic [Recovered/Resolved]

NARRATIVE: CASE EVENT DATE: 20201104
